FAERS Safety Report 6838994-7 (Version None)
Quarter: 2010Q3

REPORT INFORMATION
  Report Type: 
  Country: None (occurrence: None)
  Receive Date: 20100713
  Receipt Date: 20090415
  Transmission Date: 20110219
  Serious: Yes (Other)
  Sender: FDA-Public Use
  Company Number: US-PFIZER INC-2007049407

PATIENT
  Sex: Female
  Weight: 53.515 kg

DRUGS (12)
  1. CHANTIX [Suspect]
     Indication: SMOKING CESSATION THERAPY
     Dosage: 0.5 MG, 1X/DAY
     Route: 048
     Dates: start: 20070408, end: 20070601
  2. PROCHLORPERAZINE [Suspect]
     Indication: NAUSEA
     Dates: start: 20070101
  3. LAXATIVES [Concomitant]
  4. HYDROCHLOROTHIAZIDE [Concomitant]
     Indication: HYPERTENSION
  5. SEROQUEL [Concomitant]
     Indication: SLEEP DISORDER
  6. EFFEXOR [Concomitant]
  7. MULTI-VITAMINS [Concomitant]
  8. LIPITOR [Concomitant]
  9. LISINOPRIL [Concomitant]
     Indication: HYPERTENSION
  10. ATENOLOL [Concomitant]
     Indication: HYPERTENSION
  11. CALCIUM [Concomitant]
  12. VENLAFAXINE HYDROCHLORIDE [Concomitant]
     Dosage: UNK

REACTIONS (6)
  - DIZZINESS [None]
  - DYSPNOEA [None]
  - FEELING ABNORMAL [None]
  - HYPERVENTILATION [None]
  - HYPOVENTILATION [None]
  - RESPIRATORY RATE INCREASED [None]
